FAERS Safety Report 6446120-1 (Version None)
Quarter: 2009Q4

REPORT INFORMATION
  Report Type: 
  Country: None (occurrence: None)
  Receive Date: 20091119
  Receipt Date: 20091019
  Transmission Date: 20100525
  Serious: No
  Sender: FDA-Public Use
  Company Number: US-BAYER-200936764NA

PATIENT
  Age: 25 Year
  Sex: Female
  Weight: 93 kg

DRUGS (2)
  1. MIRENA [Suspect]
     Indication: CONTRACEPTION
     Route: 015
     Dates: start: 20090710
  2. ADVAIR DISKUS 100/50 [Concomitant]

REACTIONS (12)
  - ACNE [None]
  - BACK PAIN [None]
  - DEPRESSED MOOD [None]
  - HEADACHE [None]
  - LIBIDO DECREASED [None]
  - MUSCULOSKELETAL STIFFNESS [None]
  - NAUSEA [None]
  - NERVOUSNESS [None]
  - PELVIC PAIN [None]
  - VAGINAL DISCHARGE [None]
  - VAGINAL HAEMORRHAGE [None]
  - WEIGHT INCREASED [None]
